FAERS Safety Report 4375076-0 (Version None)
Quarter: 2004Q2

REPORT INFORMATION
  Report Type: 
  Country: None (occurrence: None)
  Receive Date: 20040603
  Receipt Date: 20040408
  Transmission Date: 20050107
  Serious: No
  Sender: FDA-Public Use
  Company Number: 2004AP02127

PATIENT
  Sex: Female

DRUGS (2)
  1. MARCAINE [Suspect]
  2. MARCAINE [Suspect]

REACTIONS (3)
  - CARDIAC DISORDER [None]
  - DIPLOPIA [None]
  - EYELID DISORDER [None]
